FAERS Safety Report 9302803 (Version 1)
Quarter: 2013Q2

REPORT INFORMATION
  Report Type: Spontaneous
  Country: FR (occurrence: FR)
  Receive Date: 20130522
  Receipt Date: 20130522
  Transmission Date: 20140414
  Serious: Yes (Other)
  Sender: FDA-Public Use
  Company Number: FR-AMGEN-FRACT2013035367

PATIENT
  Age: 37 Year
  Sex: Female

DRUGS (1)
  1. ENBREL [Suspect]
     Indication: ANKYLOSING SPONDYLITIS
     Dosage: UNK

REACTIONS (5)
  - Hemiparesis [Not Recovered/Not Resolved]
  - Dizziness [Not Recovered/Not Resolved]
  - Demyelination [Not Recovered/Not Resolved]
  - Optic neuritis [Not Recovered/Not Resolved]
  - Paraesthesia [Not Recovered/Not Resolved]
